FAERS Safety Report 21178265 (Version 1)
Quarter: 2022Q3

REPORT INFORMATION
  Report Type: Spontaneous
  Country: US (occurrence: US)
  Receive Date: 20220805
  Receipt Date: 20220805
  Transmission Date: 20221027
  Serious: Yes (Other)
  Sender: FDA-Public Use
  Company Number: US-PFIZER INC-202200935332

PATIENT
  Age: 54 Year
  Sex: Female
  Weight: 58.957 kg

DRUGS (2)
  1. PREMARIN [Suspect]
     Active Substance: ESTROGENS, CONJUGATED
     Indication: Hot flush
     Dosage: 0.625 MG, 1X/DAY
  2. PROGESTERONE [Concomitant]
     Active Substance: PROGESTERONE
     Dosage: 100 MG

REACTIONS (2)
  - Postmenopausal haemorrhage [Not Recovered/Not Resolved]
  - Breast tenderness [Not Recovered/Not Resolved]
